FAERS Safety Report 17065139 (Version 1)
Quarter: 2019Q4

REPORT INFORMATION
  Report Type: Spontaneous
  Country: GB (occurrence: GB)
  Receive Date: 20191122
  Receipt Date: 20191122
  Transmission Date: 20200122
  Serious: Yes (Other)
  Sender: FDA-Public Use
  Company Number: GB-AMGEN-GBRSP2019191763

PATIENT
  Age: 68 Year
  Sex: Female
  Weight: 59.87 kg

DRUGS (1)
  1. REPATHA [Suspect]
     Active Substance: EVOLOCUMAB
     Indication: LOW DENSITY LIPOPROTEIN INCREASED
     Dosage: 140 MILLIGRAM, Q2WK
     Route: 051
     Dates: start: 20180328, end: 20181128

REACTIONS (15)
  - Renal pain [Unknown]
  - Arthralgia [Unknown]
  - Onychoclasis [Unknown]
  - Gingival pain [Unknown]
  - Pruritus [Unknown]
  - Vascular pain [Unknown]
  - Alopecia [Unknown]
  - Fatigue [Unknown]
  - Urticaria [Unknown]
  - Feeling abnormal [Unknown]
  - Back pain [Unknown]
  - Upper respiratory tract infection [Unknown]
  - Confusional state [Unknown]
  - Pharyngitis [Unknown]
  - Pain in extremity [Not Recovered/Not Resolved]

NARRATIVE: CASE EVENT DATE: 2018
